FAERS Safety Report 17212302 (Version 2)
Quarter: 2020Q1

REPORT INFORMATION
  Report Type: Report from Study
  Country: US (occurrence: US)
  Receive Date: 20191230
  Receipt Date: 20200127
  Transmission Date: 20200409
  Serious: Yes (Other)
  Sender: FDA-Public Use
  Company Number: US-BRISTOL-MYERS SQUIBB COMPANY-BMS-2019-119800

PATIENT
  Sex: Female

DRUGS (1)
  1. ABATACEPT [Suspect]
     Active Substance: ABATACEPT
     Indication: RHEUMATOID ARTHRITIS
     Dosage: 125 MG/ML
     Route: 058
     Dates: start: 201911

REACTIONS (7)
  - Squamous cell carcinoma of skin [Unknown]
  - Cough [Unknown]
  - Rhinorrhoea [Unknown]
  - Chest discomfort [Unknown]
  - Macule [Unknown]
  - Immunodeficiency [Unknown]
  - Wound [Unknown]
